FAERS Safety Report 5413740-2 (Version None)
Quarter: 2007Q3

REPORT INFORMATION
  Report Type: 
  Country: None (occurrence: None)
  Receive Date: 20070713
  Receipt Date: 20070425
  Transmission Date: 20080115
  Serious: Yes (Hospitalization)
  Sender: FDA-Public Use
  Company Number: US-JNJFOC-20070101756

PATIENT
  Age: 34 Year
  Sex: Female
  Weight: 56.6996 kg

DRUGS (3)
  1. ORTHO EVRA [Suspect]
     Indication: CONTRACEPTION
     Dosage: TRANSDERMAL
     Route: 062
     Dates: end: 20041208
  2. OVCON-35 [Suspect]
     Indication: MENOMETRORRHAGIA
     Dosage: 1 DOSE(S), 1 IN 1 DAY
     Dates: start: 20041208, end: 20041210
  3. DETROL LA (TOLTERODINE L-TARTRATE) UNSPECIFIED [Concomitant]

REACTIONS (1)
  - CEREBROVASCULAR ACCIDENT [None]
